FAERS Safety Report 14197762 (Version 3)
Quarter: 2017Q4

REPORT INFORMATION
  Report Type: Report from Study
  Country: None (occurrence: US)
  Receive Date: 20171117
  Receipt Date: 20171208
  Transmission Date: 20180321
  Serious: Yes (Hospitalization)
  Sender: FDA-Public Use
  Company Number: US-ABBVIE-17K-163-2166171-00

PATIENT
  Age: 81 Year
  Sex: Male

DRUGS (6)
  1. PROPANTHELINE [Concomitant]
     Active Substance: PROPANTHELINE
     Indication: PRODUCT USED FOR UNKNOWN INDICATION
  2. SIMVASTATIN. [Concomitant]
     Active Substance: SIMVASTATIN
     Indication: HYPERLIPIDAEMIA
  3. MIRAPEX [Concomitant]
     Active Substance: PRAMIPEXOLE DIHYDROCHLORIDE
     Indication: PARKINSON^S DISEASE
  4. TAMSULOSIN [Concomitant]
     Active Substance: TAMSULOSIN
     Indication: PRODUCT USED FOR UNKNOWN INDICATION
  5. DUOPA [Suspect]
     Active Substance: CARBIDOPA\LEVODOPA
     Indication: PARKINSON^S DISEASE
     Route: 050
     Dates: start: 20171018
  6. FLOMAX [Concomitant]
     Active Substance: TAMSULOSIN HYDROCHLORIDE
     Indication: PROSTATIC DISORDER

REACTIONS (12)
  - Hernia [Unknown]
  - Device issue [Unknown]
  - Somnolence [Recovered/Resolved]
  - Device dislocation [Recovered/Resolved]
  - Rectal haemorrhage [Not Recovered/Not Resolved]
  - Device kink [Recovered/Resolved]
  - Pneumonia aspiration [Recovering/Resolving]
  - Gastritis [Recovering/Resolving]
  - Oesophageal ulcer [Recovered/Resolved]
  - Haemoptysis [Recovered/Resolved]
  - Hypotension [Recovering/Resolving]
  - Abnormal behaviour [Recovered/Resolved]

NARRATIVE: CASE EVENT DATE: 201711
